FAERS Safety Report 4921203-3 (Version None)
Quarter: 2006Q1

REPORT INFORMATION
  Report Type: 
  Country: None (occurrence: None)
  Receive Date: 20060125
  Receipt Date: 20050726
  Transmission Date: 20060701
  Serious: Yes (Hospitalization)
  Sender: FDA-Public Use
  Company Number: HQWYE524226JUL05

PATIENT
  Sex: Male

DRUGS (1)
  1. CORDARONE [Suspect]

REACTIONS (1)
  - DRUG TOXICITY [None]
